FAERS Safety Report 15061314 (Version 1)
Quarter: 2018Q2

REPORT INFORMATION
  Report Type: Spontaneous
  Country: US (occurrence: US)
  Receive Date: 20180625
  Receipt Date: 20180625
  Transmission Date: 20180711
  Serious: Yes (Other)
  Sender: FDA-Public Use
  Company Number: US-ROCHE-1935627

PATIENT
  Sex: Female
  Weight: 65.83 kg

DRUGS (2)
  1. XELODA [Suspect]
     Active Substance: CAPECITABINE
     Indication: BREAST CANCER STAGE IV
     Dosage: 4 PILLS IN AM AND 4 PILLS IN PM ;ONGOING: NO
     Route: 048
     Dates: start: 201702, end: 201702
  2. XELODA [Suspect]
     Active Substance: CAPECITABINE
     Dosage: 2 PILLS IN AM AND 2 PILLS IN PM ;ONGOING: YES
     Route: 048
     Dates: start: 201703

REACTIONS (6)
  - Lacrimation increased [Unknown]
  - Joint swelling [Unknown]
  - Visual impairment [Not Recovered/Not Resolved]
  - Peripheral swelling [Unknown]
  - Eye pruritus [Unknown]
  - Diarrhoea [Not Recovered/Not Resolved]
